FAERS Safety Report 8014407-7 (Version None)
Quarter: 2011Q4

REPORT INFORMATION
  Report Type: 
  Country: None (occurrence: None)
  Receive Date: 20111229
  Receipt Date: 20111220
  Transmission Date: 20120403
  Serious: Yes (Other)
  Sender: FDA-Public Use
  Company Number: US-ELI_LILLY_AND_COMPANY-US201112006654

PATIENT
  Sex: Female

DRUGS (2)
  1. CYMBALTA [Suspect]
     Indication: ANXIETY
     Dosage: 30 MG, QD
  2. CYMBALTA [Suspect]
     Dosage: 60 MG, QD
     Dates: end: 20111217

REACTIONS (7)
  - FEELING ABNORMAL [None]
  - DEHYDRATION [None]
  - APHAGIA [None]
  - HEADACHE [None]
  - LOSS OF CONSCIOUSNESS [None]
  - NAUSEA [None]
  - DYSGEUSIA [None]
